FAERS Safety Report 6261284-0 (Version None)
Quarter: 2009Q3

REPORT INFORMATION
  Report Type: 
  Country: None (occurrence: None)
  Receive Date: 20090709
  Receipt Date: 20090317
  Transmission Date: 20100115
  Serious: No
  Sender: FDA-Public Use
  Company Number: US-KINGPHARMUSA00001-K200900301

PATIENT
  Age: 65 Year
  Sex: Male
  Weight: 72.562 kg

DRUGS (2)
  1. LEVOXYL [Suspect]
     Indication: HYPOTHYROIDISM
     Dosage: 137 MCG, QD
     Route: 048
     Dates: start: 20040101
  2. ANTIPSORIATICS FOR TOPICAL USE [Concomitant]
     Indication: ECZEMA

REACTIONS (2)
  - ANAL PRURITUS [None]
  - RECTAL DISCHARGE [None]
